FAERS Safety Report 16280101 (Version 1)
Quarter: 2019Q2

REPORT INFORMATION
  Report Type: Spontaneous
  Country: US (occurrence: US)
  Receive Date: 20190507
  Receipt Date: 20190507
  Transmission Date: 20190711
  Serious: Yes (Other)
  Sender: FDA-Public Use
  Company Number: US-ASTRAZENECA-2019SE67117

PATIENT
  Sex: Male

DRUGS (1)
  1. QUETIAPINE. [Suspect]
     Active Substance: QUETIAPINE
     Dosage: 300MG-400MG UNKNOWN
     Route: 048
     Dates: start: 2015, end: 2017

REACTIONS (7)
  - Seizure like phenomena [Unknown]
  - Somnolence [Unknown]
  - Hyperphagia [Unknown]
  - Heart rate increased [Unknown]
  - Blood pressure increased [Unknown]
  - Weight increased [Unknown]
  - Lip discolouration [Unknown]
